FAERS Safety Report 5246632-2 (Version None)
Quarter: 2007Q1

REPORT INFORMATION
  Report Type: 
  Country: None (occurrence: None)
  Receive Date: 20070226
  Receipt Date: 20070215
  Transmission Date: 20070707
  Serious: Yes (Other)
  Sender: FDA-Public Use
  Company Number: NZ-ROCHE-483168

PATIENT

DRUGS (1)
  1. COPEGUS [Suspect]
     Indication: HEPATITIS C VIRUS
     Route: 048

REACTIONS (1)
  - HAEMOLYTIC ANAEMIA [None]
